FAERS Safety Report 6979896-5 (Version None)
Quarter: 2010Q3

REPORT INFORMATION
  Report Type: 
  Country: None (occurrence: None)
  Receive Date: 20100909
  Receipt Date: 20100830
  Transmission Date: 20110219
  Serious: Yes (Other)
  Sender: FDA-Public Use
  Company Number: 2010JP005132

PATIENT
  Age: 82 Year
  Sex: Male

DRUGS (2)
  1. VESICARE [Suspect]
     Indication: HYPERTONIC BLADDER
     Dosage: 2.5 MG, BID, ORAL
     Route: 048
     Dates: start: 20100412
  2. HARNAL (TAMSULOSIN) ORODISPERSIBLE CR TABLET [Concomitant]

REACTIONS (1)
  - COGNITIVE DISORDER [None]
